FAERS Safety Report 4482157-X (Version None)
Quarter: 2004Q4

REPORT INFORMATION
  Report Type: 
  Country: None (occurrence: None)
  Receive Date: 20041020
  Receipt Date: 20041006
  Transmission Date: 20050328
  Serious: Yes (Hospitalization, Other)
  Sender: FDA-Public Use
  Company Number: USA041080412

PATIENT
  Age: 68 Year
  Sex: Female

DRUGS (1)
  1. EVISTA [Suspect]
     Indication: CANCER PAIN
     Dates: start: 20010101, end: 20040101

REACTIONS (3)
  - ARTHROPATHY [None]
  - BACK PAIN [None]
  - PULMONARY THROMBOSIS [None]
